FAERS Safety Report 19904307 (Version 5)
Quarter: 2021Q4

REPORT INFORMATION
  Report Type: Report from Study
  Country: JP (occurrence: JP)
  Receive Date: 20211001
  Receipt Date: 20211111
  Transmission Date: 20220303
  Serious: No
  Sender: FDA-Public Use
  Company Number: JP-ASTELLAS-2021JP016613

PATIENT
  Age: 59 Year
  Sex: Male

DRUGS (13)
  1. ENFORTUMAB VEDOTIN [Suspect]
     Active Substance: ENFORTUMAB VEDOTIN
     Indication: Transitional cell carcinoma
     Dosage: 103.3 MG/BODY, UNKNOWN FREQ.
     Route: 065
     Dates: start: 20210819
  2. ENFORTUMAB VEDOTIN [Suspect]
     Active Substance: ENFORTUMAB VEDOTIN
     Dosage: 99.8 MG/BODY, UNKNOWN FREQ.
     Route: 065
     Dates: start: 20210924, end: 20211008
  3. OXYCODONE HYDROCHLORIDE [Concomitant]
     Active Substance: OXYCODONE HYDROCHLORIDE
     Indication: Analgesic therapy
     Route: 048
     Dates: start: 20210819, end: 20210820
  4. Oxinorm [Concomitant]
     Indication: Analgesic therapy
     Route: 048
     Dates: start: 20210819, end: 20210820
  5. METOCLOPRAMIDE [Concomitant]
     Active Substance: METOCLOPRAMIDE
     Indication: Nausea
     Route: 065
     Dates: start: 20210826
  6. METOCLOPRAMIDE [Concomitant]
     Active Substance: METOCLOPRAMIDE
     Route: 065
     Dates: start: 20211008, end: 20211015
  7. Lopemin [Concomitant]
     Indication: Diarrhoea
     Route: 048
     Dates: start: 20210902, end: 20210924
  8. BETAMETHASONE DIPROPIONATE [Concomitant]
     Active Substance: BETAMETHASONE DIPROPIONATE
     Indication: Rash maculo-papular
     Dosage: UNK UNK, TWICE DAILY
     Route: 062
     Dates: start: 20210910, end: 20210914
  9. BETAMETHASONE DIPROPIONATE [Concomitant]
     Active Substance: BETAMETHASONE DIPROPIONATE
     Dosage: UNK UNK, ONCE DAILY
     Route: 062
     Dates: start: 20210915, end: 20211001
  10. BILASTINE [Concomitant]
     Active Substance: BILASTINE
     Indication: Rash maculo-papular
     Route: 048
     Dates: start: 20210910, end: 20210924
  11. Talion [Concomitant]
     Indication: Rash maculo-papular
     Route: 048
     Dates: start: 20210910, end: 20210924
  12. FILGRASTIM [Concomitant]
     Active Substance: FILGRASTIM
     Indication: Neutrophil count decreased
     Route: 058
     Dates: start: 20210917, end: 20210917
  13. FILGRASTIM [Concomitant]
     Active Substance: FILGRASTIM
     Route: 058
     Dates: start: 20210921, end: 20210921

REACTIONS (6)
  - Hepatic function abnormal [Recovering/Resolving]
  - Neutrophil count decreased [Recovered/Resolved]
  - Rash maculo-papular [Recovered/Resolved]
  - Diarrhoea [Recovered/Resolved]
  - Alopecia [Not Recovered/Not Resolved]
  - Nausea [Recovered/Resolved]

NARRATIVE: CASE EVENT DATE: 20210819
